FAERS Safety Report 5039082-5 (Version None)
Quarter: 2006Q2

REPORT INFORMATION
  Report Type: 
  Country: None (occurrence: None)
  Receive Date: 20060629
  Receipt Date: 20060612
  Transmission Date: 20061013
  Serious: Yes (Hospitalization)
  Sender: FDA-Public Use
  Company Number: CA-AMGEN-US182534

PATIENT
  Sex: Male

DRUGS (1)
  1. ENBREL [Suspect]
     Indication: PSORIATIC ARTHROPATHY
     Route: 058
     Dates: start: 20051109, end: 20060502

REACTIONS (3)
  - MESOTHELIOMA MALIGNANCY UNSPECIFIED [None]
  - METASTATIC NEOPLASM [None]
  - PLEURAL EFFUSION [None]
